FAERS Safety Report 7473982-1 (Version None)
Quarter: 2011Q2

REPORT INFORMATION
  Report Type: 
  Country: None (occurrence: None)
  Receive Date: 20110511
  Receipt Date: 20110505
  Transmission Date: 20111010
  Serious: Yes (Death, Hospitalization, Other)
  Sender: FDA-Public Use
  Company Number: FR-PFIZER INC-2011061299

PATIENT
  Age: 80 Year
  Sex: Male

DRUGS (8)
  1. LYRICA [Suspect]
     Indication: NEUROPATHY PERIPHERAL
     Dosage: 25 MG, 2X/DAY
     Dates: start: 20110215
  2. LYRICA [Suspect]
     Dosage: 25MG DAILY
     Dates: start: 20110201, end: 20110223
  3. EUPRESSYL [Concomitant]
     Indication: HYPERTENSION
     Dosage: 60 MG, 2X/DAY
     Route: 048
     Dates: start: 20091022
  4. ALFUZOSIN HYDROCHLORIDE [Concomitant]
     Indication: PROSTATIC DISORDER
     Dosage: 10 MG, 1X/DAY
     Route: 048
     Dates: start: 20110215, end: 20110221
  5. COTAREG [Concomitant]
     Indication: HYPERTENSION
     Dosage: 80/12.5 ONCE DAILY
     Route: 048
     Dates: start: 20101031
  6. SYMBICORT [Concomitant]
     Indication: CHRONIC OBSTRUCTIVE PULMONARY DISEASE
     Dosage: 400 MG, 2X/DAY
     Route: 048
  7. SPIRIVA [Concomitant]
     Indication: CHRONIC OBSTRUCTIVE PULMONARY DISEASE
     Dosage: 18 UG, 1X/DAY
     Route: 048
  8. OXYGEN [Concomitant]

REACTIONS (4)
  - PULMONARY EMBOLISM [None]
  - LUNG INFECTION [None]
  - MALAISE [None]
  - MYOCLONUS [None]
